FAERS Safety Report 8464357-7 (Version None)
Quarter: 2012Q2

REPORT INFORMATION
  Report Type: 
  Country: None (occurrence: None)
  Receive Date: 20120626
  Receipt Date: 20120619
  Transmission Date: 20120825
  Serious: Yes (Death)
  Sender: FDA-Public Use
  Company Number: CA-AMGEN-CANSP2012033957

PATIENT
  Age: 61 Year
  Sex: Female
  Weight: 54 kg

DRUGS (6)
  1. ZYPREXA [Concomitant]
     Indication: BIPOLAR DISORDER
     Dosage: 5 MG, ONE TIME DOSE
     Route: 060
  2. AMITRIPTYLINE HCL [Concomitant]
     Indication: PAIN
     Dosage: 250 MG, QHS
     Route: 048
  3. PROLIA [Suspect]
     Indication: OSTEOPOROSIS POSTMENOPAUSAL
     Dosage: 60 MG, Q6MO
     Route: 058
     Dates: start: 20120315
  4. OXAZEPAM [Concomitant]
     Indication: BIPOLAR DISORDER
     Dosage: 15 MG, BID
     Route: 048
  5. HYDROMORPHONE HCL [Concomitant]
     Indication: PAIN
     Dosage: 9 MG, BID
     Route: 048
     Dates: start: 20081119
  6. CITALOPRAM HYDROBROMIDE [Concomitant]
     Indication: BIPOLAR DISORDER
     Dosage: 30 MG, QHS
     Route: 048

REACTIONS (4)
  - DIZZINESS [None]
  - SOMNOLENCE [None]
  - DEATH [None]
  - SYNCOPE [None]
